FAERS Safety Report 11101929 (Version 2)
Quarter: 2015Q2

REPORT INFORMATION
  Report Type: Spontaneous
  Country: US (occurrence: US)
  Receive Date: 20150510
  Receipt Date: 20150512
  Transmission Date: 20150821
  Serious: No
  Sender: FDA-Public Use
  Company Number: US-009507513-1505USA002496

PATIENT
  Sex: Female
  Weight: 61.22 kg

DRUGS (1)
  1. NEXPLANON [Suspect]
     Active Substance: ETONOGESTREL
     Indication: CONTRACEPTION
     Dosage: IMPLANT IN LEFT ARM
     Route: 058
     Dates: start: 20140930

REACTIONS (3)
  - Implant site erythema [Recovered/Resolved]
  - Implant site swelling [Recovered/Resolved]
  - Implant site pain [Recovered/Resolved]
